FAERS Safety Report 4375867-6 (Version None)
Quarter: 2004Q2

REPORT INFORMATION
  Report Type: 
  Country: None (occurrence: None)
  Receive Date: 20040607
  Receipt Date: 20040527
  Transmission Date: 20050107
  Serious: Yes (Life-Threatening, Hospitalization)
  Sender: FDA-Public Use
  Company Number: IN-JNJFOC-20040600372

PATIENT
  Age: 58 Year
  Sex: Male

DRUGS (6)
  1. REOPRO [Suspect]
     Indication: CORONARY ANGIOPLASTY
     Dosage: 7.6 ML, 1 IN 1 TOTAL, INTRAVENOUS
     Route: 042
     Dates: start: 20040523, end: 20040523
  2. PLAVIX [Concomitant]
  3. ECOSPRIN (ACETYLSALICYLIC ACID) [Concomitant]
  4. CARDAGE (RAMIPRIL) [Concomitant]
  5. LASIX [Concomitant]
  6. ENOXAPRIN (HEPARIN-FRACTION, SODIUM SALT) [Concomitant]

REACTIONS (3)
  - GASTROINTESTINAL HAEMORRHAGE [None]
  - PULMONARY HAEMORRHAGE [None]
  - THROMBOSIS [None]
